FAERS Safety Report 8315664-X (Version None)
Quarter: 2012Q2

REPORT INFORMATION
  Report Type: 
  Country: None (occurrence: None)
  Receive Date: 20120426
  Receipt Date: 20120418
  Transmission Date: 20120825
  Serious: Yes (Other)
  Sender: FDA-Public Use
  Company Number: US-AMGEN-USASP2012024868

PATIENT
  Age: 61 Year
  Sex: Female
  Weight: 73.469 kg

DRUGS (7)
  1. IRON [Concomitant]
     Indication: MINERAL SUPPLEMENTATION
     Dosage: 325 MG, QD
     Route: 048
     Dates: start: 20111101
  2. ATENOLOL [Concomitant]
     Indication: HYPERTENSION
     Dosage: UNK
     Dates: end: 20120101
  3. CRESTOR [Concomitant]
     Indication: BLOOD CHOLESTEROL INCREASED
     Dosage: 5 MG, QD
     Route: 048
     Dates: start: 20070101
  4. PROCRIT [Suspect]
     Indication: ANAEMIA
     Dosage: 20000 IU, Q2WK
     Route: 058
     Dates: start: 20111101, end: 20120101
  5. BYSTOLIC [Concomitant]
     Indication: HYPERTENSION
     Dosage: 5 MG, UNK
     Route: 048
     Dates: start: 20120101, end: 20120101
  6. FISH OIL [Concomitant]
     Indication: CARDIAC DISORDER
     Dosage: UNK
     Dates: end: 20120301
  7. BENICAR [Concomitant]
     Indication: HYPERTENSION
     Dosage: 40 MG, QD
     Route: 048
     Dates: start: 20060101

REACTIONS (8)
  - OROPHARYNGEAL PAIN [None]
  - BLOOD CREATININE INCREASED [None]
  - DYSPHONIA [None]
  - CHEST PAIN [None]
  - THYROID NEOPLASM [None]
  - HEART RATE DECREASED [None]
  - RASH [None]
  - BREAST CANCER [None]
